FAERS Safety Report 8141422-5 (Version None)
Quarter: 2012Q1

REPORT INFORMATION
  Report Type: 
  Country: None (occurrence: None)
  Receive Date: 20120216
  Receipt Date: 20120213
  Transmission Date: 20120608
  Serious: Yes (Other)
  Sender: FDA-Public Use
  Company Number: PHEH2012US001549

PATIENT
  Sex: Female

DRUGS (7)
  1. LEXAPRO [Concomitant]
  2. DIOVAN [Suspect]
     Dosage: 320 MG, PER DAY
  3. CALCIUM [Concomitant]
  4. MULTI-VITAMINS [Concomitant]
  5. NIFEDIPINE [Concomitant]
  6. SIMVASTATIN [Concomitant]
  7. ALENDRONATE SODIUM [Concomitant]

REACTIONS (3)
  - JOINT DISLOCATION [None]
  - TREMOR [None]
  - FALL [None]
